FAERS Safety Report 24136811 (Version 1)
Quarter: 2024Q3

REPORT INFORMATION
  Report Type: Spontaneous
  Country: IT (occurrence: IT)
  Receive Date: 20240725
  Receipt Date: 20240725
  Transmission Date: 20241017
  Serious: Yes (Other)
  Sender: PFIZER
  Company Number: None

PATIENT
  Age: 39 Year
  Sex: Female

DRUGS (4)
  1. CARBOPLATIN [Suspect]
     Active Substance: CARBOPLATIN
     Indication: Endometrial cancer metastatic
     Dosage: FREQ: 21 D; CARBOPLATIN AUC 5 TOTAL DOSE 440 MG G1 Q21; TWO CYCLES
     Route: 042
     Dates: start: 20240513, end: 20240513
  2. PACLITAXEL [Suspect]
     Active Substance: PACLITAXEL
     Indication: Endometrial cancer metastatic
     Dosage: FREQ:21 D; PACLITAXEL 100 MG G1,8,15 Q 21; TWO CYCLES
     Route: 042
     Dates: start: 20240403, end: 20240403
  3. PEMBROLIZUMAB [Concomitant]
     Active Substance: PEMBROLIZUMAB
     Dosage: UNK
  4. TAXOL [Concomitant]
     Active Substance: PACLITAXEL
     Dosage: UNK

REACTIONS (4)
  - Pancytopenia [Recovered/Resolved with Sequelae]
  - Urosepsis [Unknown]
  - Haematuria [Unknown]
  - Off label use [Unknown]

NARRATIVE: CASE EVENT DATE: 20240101
